FAERS Safety Report 21477097 (Version 3)
Quarter: 2024Q1

REPORT INFORMATION
  Report Type: Report from Study
  Country: US (occurrence: US)
  Receive Date: 20221019
  Receipt Date: 20240318
  Transmission Date: 20240410
  Serious: No
  Sender: FDA-Public Use
  Company Number: US-ABBVIE-22K-163-4500824-00

PATIENT
  Sex: Female

DRUGS (1)
  1. IMBRUVICA [Suspect]
     Active Substance: IBRUTINIB
     Indication: Chronic lymphocytic leukaemia
     Route: 048
     Dates: start: 202207

REACTIONS (12)
  - Joint range of motion decreased [Unknown]
  - Onychoclasis [Unknown]
  - Nail discolouration [Unknown]
  - Dizziness [Unknown]
  - Stomatitis [Unknown]
  - Pain in extremity [Unknown]
  - Dyspepsia [Unknown]
  - Dysgeusia [Unknown]
  - Full blood count abnormal [Unknown]
  - Lymphadenopathy [Recovering/Resolving]
  - Alopecia [Unknown]
  - Muscle spasms [Unknown]

NARRATIVE: CASE EVENT DATE: 20220101
